FAERS Safety Report 23343907 (Version 1)
Quarter: 2023Q4

REPORT INFORMATION
  Report Type: Spontaneous
  Country: BE (occurrence: BE)
  Receive Date: 20231227
  Receipt Date: 20231227
  Transmission Date: 20240110
  Serious: Yes (Death, Other)
  Sender: FDA-Public Use
  Company Number: BE-009507513-2311BEL009086

PATIENT
  Sex: Male

DRUGS (2)
  1. PEMBROLIZUMAB [Suspect]
     Active Substance: PEMBROLIZUMAB
     Indication: Angiocentric lymphoma
     Dosage: 200 MILLIGRAM, Q3W
     Dates: start: 2023
  2. PEG/L-ASPARAGINASE [Suspect]
     Active Substance: PEGASPARGASE
     Indication: Natural killer-cell leukaemia
     Dosage: ADMINISTERED AT THE SECOND PEMBROLIZUMAB CYCLE
     Dates: start: 2023

REACTIONS (2)
  - Hepatotoxicity [Fatal]
  - Off label use [Unknown]

NARRATIVE: CASE EVENT DATE: 20230101
